FAERS Safety Report 10003694 (Version 3)
Quarter: 2014Q3

REPORT INFORMATION
  Report Type: Report from Study
  Country: TR (occurrence: TR)
  Receive Date: 20140312
  Receipt Date: 20140717
  Transmission Date: 20150326
  Serious: Yes (Hospitalization, Other)
  Sender: FDA-Public Use
  Company Number: PHHY2013TR123614

PATIENT
  Age: 42 Year
  Sex: Male
  Weight: 86 kg

DRUGS (1)
  1. SANDOSTATIN LAR DEPOT [Suspect]
     Active Substance: OCTREOTIDE ACETATE
     Indication: ACROMEGALY
     Dosage: 20 MG, ONCE EVERY 28 DAYS
     Route: 030
     Dates: start: 20130611, end: 20131125

REACTIONS (6)
  - Blood sodium decreased [Recovering/Resolving]
  - Cholelithiasis [Recovering/Resolving]
  - Hepatic mass [Recovering/Resolving]
  - Hyperglycaemia [Unknown]
  - Dyspnoea [Unknown]
  - Inappropriate antidiuretic hormone secretion [Recovering/Resolving]

NARRATIVE: CASE EVENT DATE: 20130801
